FAERS Safety Report 6295584-5 (Version None)
Quarter: 2009Q3

REPORT INFORMATION
  Report Type: 
  Country: None (occurrence: None)
  Receive Date: 20090803
  Receipt Date: 20090724
  Transmission Date: 20100115
  Serious: Yes (Hospitalization)
  Sender: FDA-Public Use
  Company Number: ES-ABBOTT-09P-144-0586859-00

PATIENT
  Age: 52 Year
  Sex: Male

DRUGS (4)
  1. HUMIRA [Suspect]
     Indication: PSORIASIS
     Route: 058
     Dates: start: 20090301, end: 20090710
  2. NEOTIGASON [Concomitant]
     Indication: DRUG USE FOR UNKNOWN INDICATION
  3. PANTECTA [Concomitant]
     Indication: DRUG USE FOR UNKNOWN INDICATION
  4. RESEC [Concomitant]
     Indication: DRUG USE FOR UNKNOWN INDICATION

REACTIONS (2)
  - DYSURIA [None]
  - PANCREATITIS [None]
